FAERS Safety Report 19964657 (Version 1)
Quarter: 2021Q4

REPORT INFORMATION
  Report Type: Spontaneous
  Country: US (occurrence: US)
  Receive Date: 20211018
  Receipt Date: 20211018
  Transmission Date: 20220304
  Serious: No
  Sender: FDA-Public Use
  Company Number: US-ELI_LILLY_AND_COMPANY-US202110006356

PATIENT
  Sex: Female

DRUGS (2)
  1. EMGALITY [Suspect]
     Active Substance: GALCANEZUMAB-GNLM
     Indication: Cluster headache
     Dosage: 240 MG, MONTHLY (1/M)
     Route: 065
     Dates: start: 202110
  2. IMITREX [Concomitant]
     Active Substance: SUMATRIPTAN SUCCINATE
     Indication: Product used for unknown indication

REACTIONS (2)
  - Headache [Unknown]
  - Prescribed underdose [Unknown]
